FAERS Safety Report 9767351 (Version 3)
Quarter: 2014Q1

REPORT INFORMATION
  Report Type: Spontaneous
  Country: JP (occurrence: JP)
  Receive Date: 20131217
  Receipt Date: 20140307
  Transmission Date: 20141002
  Serious: Yes (Hospitalization, Other)
  Sender: FDA-Public Use
  Company Number: JP-JNJFOC-20131206361

PATIENT
  Age: 86 Year
  Sex: Male

DRUGS (3)
  1. XARELTO [Suspect]
     Indication: CEREBROVASCULAR ACCIDENT PROPHYLAXIS
     Route: 048
     Dates: start: 20131009, end: 20131205
  2. XARELTO [Suspect]
     Indication: EMBOLIC CEREBRAL INFARCTION
     Route: 048
     Dates: start: 20131009, end: 20131205
  3. XARELTO [Suspect]
     Indication: ATRIAL FIBRILLATION
     Route: 048
     Dates: start: 20131009, end: 20131205

REACTIONS (1)
  - Immune thrombocytopenic purpura [Unknown]
